FAERS Safety Report 6828772-7 (Version None)
Quarter: 2010Q3

REPORT INFORMATION
  Report Type: 
  Country: None (occurrence: None)
  Receive Date: 20100709
  Receipt Date: 20070220
  Transmission Date: 20110219
  Serious: No
  Sender: FDA-Public Use
  Company Number: US-PFIZER INC-2007014352

PATIENT
  Sex: Female

DRUGS (4)
  1. CHANTIX [Suspect]
     Indication: SMOKING CESSATION THERAPY
     Dates: start: 20061001, end: 20060101
  2. CETIRIZINE HCL AND PSEUDOEPHEDRINE [Concomitant]
  3. IBUPROFEN [Concomitant]
  4. MONTELUKAST SODIUM [Concomitant]

REACTIONS (1)
  - CONSTIPATION [None]
